FAERS Safety Report 5169456-3 (Version None)
Quarter: 2006Q4

REPORT INFORMATION
  Report Type: 
  Country: None (occurrence: None)
  Receive Date: 20061201
  Receipt Date: 20061120
  Transmission Date: 20070319
  Serious: Yes (Other)
  Sender: FDA-Public Use
  Company Number: 2006100489

PATIENT
  Age: 68 Year
  Sex: Male
  Weight: 72.5755 kg

DRUGS (4)
  1. LYRICA [Suspect]
     Indication: SCIATICA
     Dosage: 50 MG (50 MG, 1 IN 1 D), ORAL
     Route: 048
     Dates: start: 20060101, end: 20060726
  2. LIPITOR [Concomitant]
  3. CAPTOPRIL [Concomitant]
  4. MULTI-VITAMINS [Concomitant]

REACTIONS (6)
  - DRUG INEFFECTIVE [None]
  - DYSARTHRIA [None]
  - EMOTIONAL DISTRESS [None]
  - FEELING ABNORMAL [None]
  - MUSCLE TWITCHING [None]
  - SEDATION [None]
